FAERS Safety Report 20324518 (Version 2)
Quarter: 2022Q1

REPORT INFORMATION
  Report Type: Spontaneous
  Country: US (occurrence: US)
  Receive Date: 20220111
  Receipt Date: 20220124
  Transmission Date: 20220423
  Serious: Yes (Hospitalization, Other)
  Sender: FDA-Public Use
  Company Number: US-ViiV Healthcare Limited-73663

PATIENT
  Age: 59 Year
  Sex: Female

DRUGS (10)
  1. RILPIVIRINE [Suspect]
     Active Substance: RILPIVIRINE
     Indication: HIV infection
     Route: 030
     Dates: start: 20211203
  2. CABOTEGRAVIR [Suspect]
     Active Substance: CABOTEGRAVIR
     Indication: HIV infection
     Route: 030
     Dates: start: 20211203
  3. AMOXICILLIN [Suspect]
     Active Substance: AMOXICILLIN
     Indication: Rash
     Dosage: UNK
     Route: 065
  4. COVID-19 VACCINE NOS [Suspect]
     Active Substance: COVID-19 VACCINE NOS
     Indication: COVID-19 prophylaxis
     Dosage: UNK
     Route: 065
  5. PREDNISONE [Suspect]
     Active Substance: PREDNISONE
     Indication: Drug reaction with eosinophilia and systemic symptoms
     Dosage: 60 MG, QD
     Route: 065
  6. LEXAPRO [Suspect]
     Active Substance: ESCITALOPRAM OXALATE
     Indication: Depression
     Dosage: UNK
     Route: 065
  7. ESCITALOPRAM [Suspect]
     Active Substance: ESCITALOPRAM OXALATE
     Indication: Product used for unknown indication
     Route: 065
  8. CABOTEGRAVIR [Concomitant]
     Active Substance: CABOTEGRAVIR
     Indication: Product used for unknown indication
     Route: 048
     Dates: start: 20211104
  9. RILPIVIRINE [Concomitant]
     Active Substance: RILPIVIRINE
     Indication: Product used for unknown indication
     Route: 048
     Dates: start: 20211104
  10. BIKTARVY [Concomitant]
     Active Substance: BICTEGRAVIR SODIUM\EMTRICITABINE\TENOFOVIR ALAFENAMIDE FUMARATE
     Indication: HIV infection
     Dosage: UNK
     Dates: start: 20200311, end: 202110

REACTIONS (35)
  - Drug reaction with eosinophilia and systemic symptoms [Unknown]
  - Angiomyolipoma [Unknown]
  - Fatigue [Recovered/Resolved]
  - Pyrexia [Recovered/Resolved]
  - Rash [Recovering/Resolving]
  - Rash papular [Recovering/Resolving]
  - Chest pain [Unknown]
  - Rash erythematous [Recovering/Resolving]
  - Rash pruritic [Unknown]
  - Liver function test increased [Unknown]
  - Eosinophilia [Unknown]
  - Urticaria [Unknown]
  - Swelling of eyelid [Recovering/Resolving]
  - Rash maculo-papular [Unknown]
  - Skin abrasion [Unknown]
  - Swelling face [Recovering/Resolving]
  - Erythema [Recovering/Resolving]
  - Swelling [Not Recovered/Not Resolved]
  - Sinusitis [Unknown]
  - Headache [Unknown]
  - Decreased appetite [Unknown]
  - Pain [Unknown]
  - Rhinovirus infection [Unknown]
  - COVID-19 [Unknown]
  - Depression [Unknown]
  - Nasal congestion [Unknown]
  - Rhinorrhoea [Unknown]
  - Eye pain [Unknown]
  - Upper respiratory tract infection [Unknown]
  - Viral rash [Unknown]
  - Leukocytosis [Unknown]
  - Condition aggravated [Unknown]
  - Sinus pain [Unknown]
  - Oropharyngeal pain [Unknown]
  - Quarantine [Unknown]

NARRATIVE: CASE EVENT DATE: 20211201
